FAERS Safety Report 7451616-X (Version None)
Quarter: 2011Q2

REPORT INFORMATION
  Report Type: 
  Country: None (occurrence: None)
  Receive Date: 20110502
  Receipt Date: 20100713
  Transmission Date: 20111010
  Serious: No
  Sender: FDA-Public Use
  Company Number: US-ASTRAZENECA-2009SE05240

PATIENT
  Age: 60 Year
  Sex: Female
  Weight: 50.3 kg

DRUGS (6)
  1. NAPROSYN [Concomitant]
  2. ADVAIR DISKUS 100/50 [Concomitant]
  3. TRAZODONE HCL [Concomitant]
  4. NEXIUM [Suspect]
     Indication: GASTROOESOPHAGEAL REFLUX DISEASE
     Route: 048
  5. EFFEXOR XR [Concomitant]
  6. DEPAKOTE ER [Concomitant]

REACTIONS (5)
  - DRUG INEFFECTIVE [None]
  - DRUG DOSE OMISSION [None]
  - ABDOMINAL PAIN UPPER [None]
  - GENERAL PHYSICAL HEALTH DETERIORATION [None]
  - DEPRESSION [None]
